FAERS Safety Report 20355596 (Version 3)
Quarter: 2022Q4

REPORT INFORMATION
  Report Type: Spontaneous
  Country: FR (occurrence: FR)
  Receive Date: 20220120
  Receipt Date: 20221028
  Transmission Date: 20230113
  Serious: Yes (Hospitalization, Other)
  Sender: FDA-Public Use
  Company Number: None

PATIENT

DRUGS (16)
  1. ACETAMINOPHEN [Suspect]
     Active Substance: ACETAMINOPHEN
     Indication: Suicide attempt
     Dosage: 13 G
     Route: 048
     Dates: start: 20210810, end: 20210810
  2. ACETAMINOPHEN [Suspect]
     Active Substance: ACETAMINOPHEN
     Indication: Product used for unknown indication
  3. IBUPROFEN [Suspect]
     Active Substance: IBUPROFEN
     Indication: Suicide attempt
     Dosage: 25 G
     Route: 048
     Dates: start: 20210810, end: 20210810
  4. IBUPROFEN [Suspect]
     Active Substance: IBUPROFEN
     Indication: Product used for unknown indication
  5. AMOXICILLIN [Suspect]
     Active Substance: AMOXICILLIN
     Indication: Suicide attempt
     Dosage: 6 G
     Route: 048
     Dates: start: 20210810, end: 20210810
  6. AMOXICILLIN [Suspect]
     Active Substance: AMOXICILLIN
     Indication: Product used for unknown indication
  7. KETOPROFEN [Suspect]
     Active Substance: KETOPROFEN
     Indication: Suicide attempt
     Dosage: 800 MG
     Route: 048
     Dates: start: 20210810, end: 20210810
  8. KETOPROFEN [Suspect]
     Active Substance: KETOPROFEN
     Indication: Product used for unknown indication
  9. ALPRAZOLAM [Suspect]
     Active Substance: ALPRAZOLAM
     Indication: Suicide attempt
     Dosage: 6.75 MG
     Route: 048
     Dates: start: 20210810, end: 20210810
  10. ALPRAZOLAM [Suspect]
     Active Substance: ALPRAZOLAM
     Indication: Product used for unknown indication
     Dosage: UNK
     Route: 065
  11. CODEINE PHOSPHATE [Suspect]
     Active Substance: CODEINE PHOSPHATE
     Indication: Suicide attempt
     Dosage: UNK,QUANTITY NOT KNOWN, TABLET
     Route: 048
     Dates: start: 20210810, end: 20210810
  12. CODEINE PHOSPHATE [Suspect]
     Active Substance: CODEINE PHOSPHATE
     Indication: Product used for unknown indication
  13. IXPRIM [Suspect]
     Active Substance: ACETAMINOPHEN\TRAMADOL HYDROCHLORIDE
     Indication: Suicide attempt
     Dosage: UNK, QUANTITY NOT KNOWN
     Route: 048
     Dates: start: 20210810, end: 20210810
  14. IXPRIM [Suspect]
     Active Substance: ACETAMINOPHEN\TRAMADOL HYDROCHLORIDE
     Indication: Product used for unknown indication
  15. PRISTINAMYCIN [Suspect]
     Active Substance: PRISTINAMYCIN
     Indication: Suicide attempt
     Dosage: 4 G
     Route: 048
     Dates: start: 20210810, end: 20210810
  16. PRISTINAMYCIN [Suspect]
     Active Substance: PRISTINAMYCIN
     Indication: Product used for unknown indication

REACTIONS (3)
  - Altered state of consciousness [Recovered/Resolved]
  - Suicide attempt [Recovered/Resolved]
  - Toxicity to various agents [Recovered/Resolved]

NARRATIVE: CASE EVENT DATE: 20210810
